FAERS Safety Report 20180089 (Version 1)
Quarter: 2021Q4

REPORT INFORMATION
  Report Type: Spontaneous
  Country: US (occurrence: US)
  Receive Date: 20211214
  Receipt Date: 20211214
  Transmission Date: 20220303
  Serious: Yes (Hospitalization)
  Sender: FDA-Public Use
  Company Number: None

PATIENT
  Age: 64 Year
  Sex: Female

DRUGS (10)
  1. PREDNISOLONE [Suspect]
     Active Substance: PREDNISOLONE
     Indication: Liver transplant
     Dosage: 5 MILLIGRAM,PER DAY
     Route: 065
  2. PREDNISOLONE [Suspect]
     Active Substance: PREDNISOLONE
     Dosage: UNK, DOSE TAPERED
     Route: 065
  3. PREDNISOLONE [Suspect]
     Active Substance: PREDNISOLONE
     Dosage: 2.5 MILLIGRAM, TAPERING OFF PREDNISONE; SHE DECREASED IT TO 2.5MG DAILY FOR TWO WEEKS STARTING ONE D
     Route: 065
  4. PREDNISOLONE [Suspect]
     Active Substance: PREDNISOLONE
     Dosage: UNK, RESTARTED AFTER 15 DAYS
     Route: 065
  5. MYCOPHENOLATE MOFETIL [Suspect]
     Active Substance: MYCOPHENOLATE MOFETIL
     Indication: Transplant rejection
     Dosage: 2000 MILLIGRAM PER DAY
     Route: 065
  6. ELASOMERAN [Suspect]
     Active Substance: ELASOMERAN
     Indication: COVID-19 immunisation
     Dosage: DOSE ONE
     Route: 065
  7. METHYLPREDNISOLONE [Suspect]
     Active Substance: METHYLPREDNISOLONE
     Indication: Transplant rejection
     Dosage: 500 MILLIGRAM PER DAY
     Route: 042
  8. METHYLPREDNISOLONE [Suspect]
     Active Substance: METHYLPREDNISOLONE
     Dosage: DOSE DECREASED
     Route: 065
  9. TACROLIMUS [Concomitant]
     Active Substance: TACROLIMUS
     Indication: Liver transplant
     Dosage: 2 MILLIGRAM, BID
     Route: 065
  10. AZATHIOPRINE [Concomitant]
     Active Substance: AZATHIOPRINE
     Indication: Liver transplant
     Dosage: 150 MILLIGRAM PER DAY
     Route: 065

REACTIONS (3)
  - Transplant rejection [Recovered/Resolved]
  - Drug ineffective [Unknown]
  - Steroid withdrawal syndrome [Unknown]
